FAERS Safety Report 6261922-2 (Version None)
Quarter: 2009Q3

REPORT INFORMATION
  Report Type: 
  Country: None (occurrence: None)
  Receive Date: 20090709
  Receipt Date: 20090304
  Transmission Date: 20100115
  Serious: Yes (Life-Threatening, Hospitalization)
  Sender: FDA-Public Use
  Company Number: B0582753A

PATIENT
  Age: 47 Year
  Sex: Male
  Weight: 98 kg

DRUGS (9)
  1. OMACOR [Suspect]
     Dosage: 1000MG PER DAY
     Route: 048
     Dates: start: 20040615, end: 20050614
  2. TOREM [Concomitant]
  3. PLAVIX [Concomitant]
  4. LISINOPRIL [Concomitant]
  5. BELOC ZOK [Concomitant]
  6. ASPIRIN [Concomitant]
  7. EUTHYROX [Concomitant]
  8. POTASSIUM CHLORIDE [Concomitant]
     Dosage: 40MMOL PER DAY
  9. INSULIN [Concomitant]

REACTIONS (1)
  - VENTRICULAR TACHYCARDIA [None]
